FAERS Safety Report 7364770-5 (Version None)
Quarter: 2011Q1

REPORT INFORMATION
  Report Type: 
  Country: None (occurrence: None)
  Receive Date: 20110321
  Receipt Date: 20110311
  Transmission Date: 20110831
  Serious: Yes (Other)
  Sender: FDA-Public Use
  Company Number: FR-CEPHALON-2011000555

PATIENT
  Sex: Female

DRUGS (13)
  1. DURAGESIC-100 [Concomitant]
  2. OGAST [Concomitant]
  3. DITROPAN [Concomitant]
  4. MAXALT [Concomitant]
  5. FELDENE [Concomitant]
  6. RIVOTRIL [Concomitant]
  7. FENTANYL CITRATE [Suspect]
     Indication: PAIN
     Route: 002
  8. LYRICA [Concomitant]
  9. HEXAQUINE [Concomitant]
  10. BUSPAR [Concomitant]
  11. CYMBALTA [Concomitant]
  12. ZOLPIDEM [Concomitant]
  13. ACETAMINOPHEN AND TRAMADOL HCL [Concomitant]

REACTIONS (3)
  - DRUG INEFFECTIVE FOR UNAPPROVED INDICATION [None]
  - INTENTIONAL DRUG MISUSE [None]
  - DRUG PRESCRIBING ERROR [None]
